FAERS Safety Report 9319438 (Version 2)
Quarter: 2013Q3

REPORT INFORMATION
  Report Type: Spontaneous
  Country: US (occurrence: US)
  Receive Date: 20130530
  Receipt Date: 20130823
  Transmission Date: 20140515
  Serious: Yes (Hospitalization)
  Sender: FDA-Public Use
  Company Number: US-GLAXOSMITHKLINE-A0982711A

PATIENT
  Age: 3 Month
  Sex: Female
  Weight: 10 kg

DRUGS (1)
  1. FLOLAN [Suspect]
     Indication: PULMONARY ARTERIAL HYPERTENSION
     Dosage: 36NGKM CONTINUOUS
     Route: 042
     Dates: start: 20120331

REACTIONS (3)
  - Flushing [Recovered/Resolved]
  - Nasopharyngitis [Recovered/Resolved]
  - Medical device complication [Recovered/Resolved]
